FAERS Safety Report 12250036 (Version 1)
Quarter: 2016Q2

REPORT INFORMATION
  Report Type: Spontaneous
  Country: FR (occurrence: JP)
  Receive Date: 20160408
  Receipt Date: 20160408
  Transmission Date: 20160815
  Serious: Yes (Hospitalization)
  Sender: FDA-Public Use
  Company Number: JP-FRI-1000081494

PATIENT
  Age: 60 Year
  Sex: Female

DRUGS (1)
  1. MILNACIPRAN [Suspect]
     Active Substance: MILNACIPRAN
     Indication: PRODUCT USED FOR UNKNOWN INDICATION
     Dosage: 100 MG
     Route: 048

REACTIONS (3)
  - Norepinephrine increased [Not Recovered/Not Resolved]
  - Adrenomegaly [Not Recovered/Not Resolved]
  - Blood pressure increased [Not Recovered/Not Resolved]
